FAERS Safety Report 6781356-1 (Version None)
Quarter: 2010Q2

REPORT INFORMATION
  Report Type: 
  Country: None (occurrence: None)
  Receive Date: 20100621
  Receipt Date: 20100617
  Transmission Date: 20101027
  Serious: Yes (Life-Threatening, Hospitalization)
  Sender: FDA-Public Use
  Company Number: PHHY2010FR23711

PATIENT
  Age: 30 Year
  Sex: Male

DRUGS (3)
  1. TEGRETOL [Suspect]
     Dosage: 200 MG, BID
     Dates: start: 20091001, end: 20091008
  2. CEFUROXIME [Concomitant]
     Dosage: 2 DF, QD
     Dates: start: 20091001, end: 20091008
  3. SUDAFED 12 HOUR [Concomitant]
     Indication: NASOPHARYNGITIS
     Dosage: 60MG, UNK
     Dates: start: 20091001, end: 20091008

REACTIONS (20)
  - CELL DEATH [None]
  - CONJUNCTIVAL EROSION [None]
  - DERMATITIS BULLOUS [None]
  - DRY EYE [None]
  - DYSPHAGIA [None]
  - ERYTHEMA [None]
  - GENITAL EROSION [None]
  - HYPERTHERMIA [None]
  - HYPONATRAEMIA [None]
  - ORAL DISORDER [None]
  - ORAL MUCOSA EROSION [None]
  - PHIMOSIS [None]
  - RASH [None]
  - RASH ERYTHEMATOUS [None]
  - SCAB [None]
  - SKIN EROSION [None]
  - SKIN EXFOLIATION [None]
  - SURGERY [None]
  - TOXIC EPIDERMAL NECROLYSIS [None]
  - XEROPHTHALMIA [None]
